FAERS Safety Report 23850780 (Version 3)
Quarter: 2024Q2

REPORT INFORMATION
  Report Type: Spontaneous
  Country: US (occurrence: US)
  Receive Date: 20240514
  Receipt Date: 20240619
  Transmission Date: 20240716
  Serious: No
  Sender: FDA-Public Use
  Company Number: US-SA-SAC20240503000116

PATIENT
  Age: 68 Year
  Sex: Female

DRUGS (1)
  1. DUPIXENT [Suspect]
     Active Substance: DUPILUMAB
     Indication: Dermatitis atopic
     Dosage: 300 MG, QOW
     Route: 058
     Dates: start: 202308

REACTIONS (9)
  - Hypoaesthesia [Unknown]
  - Weight increased [Unknown]
  - Malaise [Unknown]
  - Visual impairment [Unknown]
  - Erythema [Unknown]
  - Dizziness [Unknown]
  - Arthralgia [Unknown]
  - Rash [Unknown]
  - Product dose omission in error [Unknown]
